FAERS Safety Report 24950252 (Version 1)
Quarter: 2025Q1

REPORT INFORMATION
  Report Type: Spontaneous
  Country: MU (occurrence: MU)
  Receive Date: 20250210
  Receipt Date: 20250210
  Transmission Date: 20250409
  Serious: Yes (Other)
  Sender: NOVARTIS
  Company Number: MU-002147023-NVSC2025MU021938

PATIENT
  Age: 70 Year
  Sex: Male

DRUGS (1)
  1. EXFORGE HCT [Suspect]
     Active Substance: AMLODIPINE BESYLATE\HYDROCHLOROTHIAZIDE\VALSARTAN
     Indication: Hypertension
     Dosage: UNK, QD (10/160/25)
     Route: 048

REACTIONS (2)
  - Haematoma [Recovering/Resolving]
  - Muscle spasms [Recovering/Resolving]
